FAERS Safety Report 7481161-7 (Version None)
Quarter: 2011Q2

REPORT INFORMATION
  Report Type: 
  Country: None (occurrence: None)
  Receive Date: 20110512
  Receipt Date: 20110512
  Transmission Date: 20111010
  Serious: Yes (Other)
  Sender: FDA-Public Use
  Company Number: None

PATIENT
  Age: 68 Year
  Sex: Female
  Weight: 56.6996 kg

DRUGS (1)
  1. METRONIDAZOLE [Suspect]
     Indication: GASTROINTESTINAL INFECTION
     Dosage: 250MG TAB 3X PD MOUTH
     Route: 048
     Dates: start: 20110223, end: 20110310

REACTIONS (3)
  - DRY MOUTH [None]
  - GLOSSODYNIA [None]
  - ORAL CANDIDIASIS [None]
